FAERS Safety Report 4899157-8 (Version None)
Quarter: 2006Q1

REPORT INFORMATION
  Report Type: 
  Country: None (occurrence: None)
  Receive Date: 20060130
  Receipt Date: 20060117
  Transmission Date: 20060701
  Serious: Yes (Hospitalization, Disabling, Other)
  Sender: FDA-Public Use
  Company Number: 2005147273

PATIENT
  Age: 67 Year
  Sex: Male
  Weight: 95 kg

DRUGS (1)
  1. VIAGRA [Suspect]
     Indication: ERECTILE DYSFUNCTION
     Dosage: ORAL
     Route: 048
     Dates: start: 19981101

REACTIONS (3)
  - BLINDNESS UNILATERAL [None]
  - MACULAR DEGENERATION [None]
  - RETINAL HAEMORRHAGE [None]
